FAERS Safety Report 4614552-X (Version None)
Quarter: 2005Q2

REPORT INFORMATION
  Report Type: 
  Country: None (occurrence: None)
  Receive Date: 20050307
  Receipt Date: 20050124
  Transmission Date: 20051028
  Serious: No
  Sender: FDA-Public Use
  Company Number: USA041285540

PATIENT
  Age: 60 Year
  Sex: Male

DRUGS (7)
  1. ALIMTA [Suspect]
     Indication: MESOTHELIOMA
     Dosage: 500 MG/M2 OTHER
     Dates: start: 20040101
  2. VITAMIN B-12 [Concomitant]
  3. FOLIC ACID [Concomitant]
  4. DEXAMETHASONE [Concomitant]
  5. RANITIDINE [Concomitant]
  6. ZOFRAN [Concomitant]
  7. LORAZEPAM [Concomitant]

REACTIONS (1)
  - RASH [None]
